FAERS Safety Report 8427954 (Version 2)
Quarter: 2013Q3

REPORT INFORMATION
  Report Type: Report from Study
  Country: JP (occurrence: JP)
  Receive Date: 20120227
  Receipt Date: 20130909
  Transmission Date: 20140515
  Serious: Yes (Death)
  Sender: FDA-Public Use
  Company Number: JP-GENZYME-THYM-1003137

PATIENT
  Age: 46 Year
  Sex: Male
  Weight: 55 kg

DRUGS (16)
  1. THYMOGLOBULIN [Suspect]
     Indication: ACUTE GRAFT VERSUS HOST DISEASE
     Dosage: 200 MG, QD
     Route: 042
     Dates: start: 20120131, end: 20120204
  2. PREDONINE [Concomitant]
     Indication: NON-HODGKIN^S LYMPHOMA
     Dosage: UNK
     Route: 065
     Dates: start: 20111224, end: 20120131
  3. PREDONINE [Concomitant]
     Dosage: UNK
     Route: 065
     Dates: start: 20120205, end: 20120208
  4. FIRSTCIN [Concomitant]
     Indication: NON-HODGKIN^S LYMPHOMA
     Dosage: UNK
     Route: 065
     Dates: start: 20120126, end: 20120206
  5. ARBEKACIN [Concomitant]
     Indication: NON-HODGKIN^S LYMPHOMA
     Dosage: UNK
     Route: 065
     Dates: start: 20120127, end: 20120206
  6. PRODIF [Concomitant]
     Indication: PROPHYLAXIS
     Dosage: UNK
     Route: 065
     Dates: start: 20120128, end: 20120206
  7. SOLU-MEDROL [Concomitant]
     Indication: PROPHYLAXIS
     Dosage: UNK
     Route: 065
     Dates: start: 20120131, end: 20120204
  8. POLARAMINE [Concomitant]
     Indication: PROPHYLAXIS
     Dosage: UNK
     Route: 065
  9. FOSCAVIR [Concomitant]
     Indication: CYSTITIS VIRAL
     Dosage: UNK
     Route: 065
     Dates: start: 20120126, end: 20120203
  10. GRAN [Concomitant]
     Indication: NON-HODGKIN^S LYMPHOMA
     Dosage: UNK
     Route: 065
     Dates: start: 20120128, end: 20120205
  11. OMEPRAL [Concomitant]
     Indication: PROPHYLAXIS
     Dosage: UNK
     Route: 065
     Dates: start: 20120128, end: 20120205
  12. FLUCONAZOLE [Concomitant]
     Indication: PROPHYLAXIS
     Dosage: UNK
     Route: 065
     Dates: start: 20110729, end: 20120202
  13. TAKEPRON [Concomitant]
     Indication: PROPHYLAXIS
     Dosage: UNK
     Route: 065
     Dates: start: 20111102, end: 20120128
  14. BIOFERMIN [Concomitant]
     Indication: NON-HODGKIN^S LYMPHOMA
     Dosage: UNK
     Route: 065
     Dates: start: 20120110, end: 20120202
  15. URSO [Concomitant]
     Indication: NON-HODGKIN^S LYMPHOMA
     Dosage: UNK
     Route: 065
     Dates: start: 20120128, end: 20120203
  16. CELLCEPT [Concomitant]
     Indication: NON-HODGKIN^S LYMPHOMA
     Dosage: UNK
     Route: 065
     Dates: start: 20120204, end: 20120207

REACTIONS (1)
  - Death [Fatal]
